FAERS Safety Report 18917920 (Version 1)
Quarter: 2021Q1

REPORT INFORMATION
  Report Type: Spontaneous
  Country: CA (occurrence: CA)
  Receive Date: 20210220
  Receipt Date: 20210220
  Transmission Date: 20210420
  Serious: Yes (Other)
  Sender: FDA-Public Use
  Company Number: CA-AUROBINDO-AUR-APL-2021-006619

PATIENT
  Age: 67 Year
  Sex: Male

DRUGS (2)
  1. NIACIN NF [Suspect]
     Active Substance: INOSITOL NIACINATE
     Indication: PRODUCT USED FOR UNKNOWN INDICATION
     Dosage: UNK
     Route: 065
  2. EZETIMIBE TABLETS [Suspect]
     Active Substance: EZETIMIBE
     Indication: PRODUCT USED FOR UNKNOWN INDICATION
     Dosage: UNK
     Route: 065

REACTIONS (5)
  - Myalgia [Unknown]
  - Blood cholesterol increased [Unknown]
  - Myocardial infarction [Unknown]
  - Drug ineffective [Unknown]
  - Angina pectoris [Unknown]
